FAERS Safety Report 6967606-7 (Version None)
Quarter: 2010Q3

REPORT INFORMATION
  Report Type: 
  Country: None (occurrence: None)
  Receive Date: 20100907
  Receipt Date: 20100827
  Transmission Date: 20110219
  Serious: Yes (Hospitalization, Other)
  Sender: FDA-Public Use
  Company Number: US-ASTRAZENECA-2010SE40047

PATIENT
  Age: 52 Year
  Sex: Male

DRUGS (7)
  1. CRESTOR [Suspect]
     Route: 048
  2. WARFARIN SODIUM [Concomitant]
  3. AMIODARONE [Concomitant]
  4. NITROGLYCERIN [Concomitant]
  5. COREG [Concomitant]
  6. MORPHINE [Concomitant]
  7. HYDROCODONE [Concomitant]

REACTIONS (6)
  - ABASIA [None]
  - BLOOD CREATINE PHOSPHOKINASE INCREASED [None]
  - FALL [None]
  - HEPATIC ENZYME INCREASED [None]
  - MUSCULAR WEAKNESS [None]
  - RHABDOMYOLYSIS [None]
